FAERS Safety Report 5854631-2 (Version None)
Quarter: 2008Q3

REPORT INFORMATION
  Report Type: 
  Country: None (occurrence: None)
  Receive Date: 20080822
  Receipt Date: 20071106
  Transmission Date: 20090109
  Serious: No
  Sender: FDA-Public Use
  Company Number: US-ABBOTT-07P-163-0424077-00

PATIENT
  Age: 33 Year
  Sex: Male
  Weight: 114 kg

DRUGS (1)
  1. SYNTHROID [Suspect]
     Indication: THYROIDECTOMY
     Route: 048
     Dates: start: 20050101

REACTIONS (3)
  - ENERGY INCREASED [None]
  - FATIGUE [None]
  - NECK MASS [None]
